FAERS Safety Report 4968876-7 (Version None)
Quarter: 2006Q2

REPORT INFORMATION
  Report Type: 
  Country: None (occurrence: None)
  Receive Date: 20060411
  Receipt Date: 20060306
  Transmission Date: 20061013
  Serious: Yes (Hospitalization)
  Sender: FDA-Public Use
  Company Number: HQWYE215308MAR06

PATIENT
  Sex: Male

DRUGS (3)
  1. ENBREL [Suspect]
     Indication: RHEUMATOID ARTHRITIS
     Route: 058
     Dates: start: 20051215, end: 20060303
  2. AZULFIDINE [Concomitant]
     Route: 048
  3. ISCOTIN [Concomitant]
     Dosage: UNSPECIFIED DOSE
     Route: 048

REACTIONS (2)
  - DISSEMINATED INTRAVASCULAR COAGULATION [None]
  - PNEUMONIA [None]
